FAERS Safety Report 8391430-4 (Version None)
Quarter: 2012Q2

REPORT INFORMATION
  Report Type: 
  Country: None (occurrence: None)
  Receive Date: 20120529
  Receipt Date: 20120515
  Transmission Date: 20120825
  Serious: Yes (Hospitalization, Other)
  Sender: FDA-Public Use
  Company Number: US-SANOFI-AVENTIS-2012SA034852

PATIENT
  Age: 68 Year
  Sex: Male
  Weight: 109.6 kg

DRUGS (6)
  1. VITAMIN D [Concomitant]
     Dates: start: 20120103
  2. TAXOTERE [Suspect]
     Indication: PROSTATE CANCER METASTATIC
     Route: 041
     Dates: start: 20120119, end: 20120119
  3. BLINDED THERAPY [Suspect]
     Indication: PROSTATE CANCER METASTATIC
     Dosage: LAST DOSE GIVEN ON CYCLE 2 DAY 25
     Route: 048
     Dates: start: 20111107, end: 20111229
  4. DENOSUMAB [Suspect]
     Indication: PROSTATE CANCER METASTATIC
     Route: 065
     Dates: start: 20111107, end: 20111205
  5. PREDNISONE TAB [Suspect]
     Indication: PROSTATE CANCER METASTATIC
     Dosage: 28 DAY CYCLES
     Route: 048
     Dates: start: 20111107, end: 20120115
  6. CALCIUM [Concomitant]
     Dates: start: 20120103

REACTIONS (5)
  - PARAESTHESIA [None]
  - ASTHENIA [None]
  - NEUTROPENIA [None]
  - HYPOCALCAEMIA [None]
  - FATIGUE [None]
